FAERS Safety Report 5596012-5 (Version None)
Quarter: 2008Q1

REPORT INFORMATION
  Report Type: 
  Country: None (occurrence: None)
  Receive Date: 20080118
  Receipt Date: 20070410
  Transmission Date: 20080703
  Serious: Yes (Other)
  Sender: FDA-Public Use
  Company Number: US-ASTRAZENECA-2007UW02174

PATIENT
  Age: 19 Year
  Sex: Female
  Weight: 140 kg

DRUGS (9)
  1. SEROQUEL [Suspect]
     Indication: BIPOLAR DISORDER
     Dosage: 25-300 MG
     Route: 048
     Dates: start: 20010401
  2. SEROQUEL [Suspect]
     Indication: SCHIZOPHRENIA
     Dosage: 25-300 MG
     Route: 048
     Dates: start: 20010401
  3. SEROQUEL [Suspect]
     Indication: DEPRESSION
     Dosage: 25-300 MG
     Route: 048
     Dates: start: 20010401
  4. ZYPREXA [Concomitant]
     Dates: start: 20010301
  5. TRILEPTAL [Concomitant]
     Dates: start: 20010101
  6. PAXIL [Concomitant]
  7. WELLBUTRIN [Concomitant]
  8. DEPAKOTE [Concomitant]
     Dates: start: 20060101
  9. ZOLOFT [Concomitant]

REACTIONS (3)
  - OBESITY [None]
  - SUICIDAL IDEATION [None]
  - TYPE 2 DIABETES MELLITUS [None]
